FAERS Safety Report 7922663-6 (Version None)
Quarter: 2011Q4

REPORT INFORMATION
  Report Type: 
  Country: None (occurrence: None)
  Receive Date: 20111117
  Receipt Date: 20110119
  Transmission Date: 20120403
  Serious: No
  Sender: FDA-Public Use
  Company Number: US-ALLERGAN-1100804US

PATIENT
  Age: 77 Year
  Sex: Male

DRUGS (3)
  1. BACITRACIN [Suspect]
     Indication: EYELIDS PRURITUS
     Dosage: UNK
     Route: 061
     Dates: start: 20110109
  2. COMBIGAN [Suspect]
     Indication: GLAUCOMA
     Dosage: 1 GTT, BID
     Route: 047
     Dates: start: 20100701
  3. BACITRACIN [Suspect]
     Indication: PRURITUS

REACTIONS (2)
  - EYELIDS PRURITUS [None]
  - PRURITUS [None]
